FAERS Safety Report 7676311-3 (Version None)
Quarter: 2011Q3

REPORT INFORMATION
  Report Type: 
  Country: None (occurrence: None)
  Receive Date: 20110805
  Receipt Date: 20110726
  Transmission Date: 20111222
  Serious: Yes (Hospitalization)
  Sender: FDA-Public Use
  Company Number: 2011P1007873

PATIENT
  Age: 76 Year
  Sex: Male

DRUGS (3)
  1. FLUOROURACIL [Suspect]
     Indication: NEOPLASM MALIGNANT
     Dosage: QD;TOP QD;TOP
     Route: 061
     Dates: start: 20110601
  2. FLUOROURACIL [Suspect]
     Indication: NEOPLASM MALIGNANT
     Dosage: QD;TOP QD;TOP
     Route: 061
     Dates: start: 20101201
  3. NEXIUM [Concomitant]

REACTIONS (5)
  - DRUG INEFFECTIVE [None]
  - SKIN EXFOLIATION [None]
  - THROMBOSIS [None]
  - SKIN IRRITATION [None]
  - APPLICATION SITE ERYTHEMA [None]
